FAERS Safety Report 8200174-0 (Version None)
Quarter: 2012Q1

REPORT INFORMATION
  Report Type: 
  Country: None (occurrence: None)
  Receive Date: 20120309
  Receipt Date: 20120309
  Transmission Date: 20120608
  Serious: No
  Sender: FDA-Public Use
  Company Number: None

PATIENT
  Age: 67 Year
  Sex: Male
  Weight: 72.5755 kg

DRUGS (2)
  1. SIMVASTATIN [Suspect]
     Indication: BLOOD CHOLESTEROL ABNORMAL
     Dosage: 40 MG 1-PER DAY
     Dates: start: 20120130, end: 20120201
  2. SIMVASTATIN [Suspect]
     Indication: BLOOD TRIGLYCERIDES ABNORMAL
     Dosage: 40 MG 1-PER DAY
     Dates: start: 20120130, end: 20120201

REACTIONS (3)
  - DRUG HYPERSENSITIVITY [None]
  - PRURITUS [None]
  - RASH [None]
